FAERS Safety Report 18582862 (Version 5)
Quarter: 2021Q2

REPORT INFORMATION
  Report Type: Spontaneous
  Country: MX (occurrence: MX)
  Receive Date: 20201205
  Receipt Date: 20210617
  Transmission Date: 20210717
  Serious: Yes (Other)
  Sender: FDA-Public Use
  Company Number: MX-UCBSA-2020050261

PATIENT
  Age: 54 Year
  Sex: Female
  Weight: 63 kg

DRUGS (1)
  1. CIMZIA [Suspect]
     Active Substance: CERTOLIZUMAB PEGOL
     Indication: RHEUMATOID ARTHRITIS
     Dosage: 400 MILLIGRAM, EV 4 WEEKS
     Dates: start: 201708

REACTIONS (9)
  - Ascites [Unknown]
  - Metastatic neoplasm [Unknown]
  - Splenic granuloma [Unknown]
  - Herpes zoster [Unknown]
  - Pleural effusion [Not Recovered/Not Resolved]
  - Disseminated tuberculosis [Unknown]
  - Cholelithiasis [Unknown]
  - COVID-19 [Not Recovered/Not Resolved]
  - Peritoneal tuberculosis [Recovered/Resolved]

NARRATIVE: CASE EVENT DATE: 202011
